FAERS Safety Report 12208046 (Version 1)
Quarter: 2016Q1

REPORT INFORMATION
  Report Type: Spontaneous
  Country: FR (occurrence: FR)
  Receive Date: 20160324
  Receipt Date: 20160324
  Transmission Date: 20160526
  Serious: Yes (Life-Threatening, Other)
  Sender: FDA-Public Use
  Company Number: FR-JNJFOC-20160223049

PATIENT
  Age: 75 Year
  Sex: Male
  Weight: 97 kg

DRUGS (4)
  1. SERTRALINE [Concomitant]
     Active Substance: SERTRALINE HYDROCHLORIDE
     Indication: DEPRESSION
     Route: 048
  2. XEPLION [Suspect]
     Active Substance: PALIPERIDONE PALMITATE
     Indication: ABNORMAL BEHAVIOUR
     Route: 030
     Dates: start: 20151019
  3. XEPLION [Suspect]
     Active Substance: PALIPERIDONE PALMITATE
     Indication: ANXIETY DISORDER
     Route: 030
     Dates: start: 20151019
  4. THORAZINE [Concomitant]
     Active Substance: CHLORPROMAZINE
     Indication: INSOMNIA
     Dosage: EVENING
     Route: 048

REACTIONS (4)
  - Product use issue [Unknown]
  - Dyskinesia [Unknown]
  - Aspiration [Unknown]
  - Off label use [Unknown]

NARRATIVE: CASE EVENT DATE: 201601
